FAERS Safety Report 15230969 (Version 1)
Quarter: 2018Q3

REPORT INFORMATION
  Report Type: Spontaneous
  Country: US (occurrence: US)
  Receive Date: 20180802
  Receipt Date: 20180802
  Transmission Date: 20181010
  Serious: Yes (Other)
  Sender: FDA-Public Use
  Company Number: US-ACCORD-063604

PATIENT
  Age: 54 Year
  Sex: Female
  Weight: 74.84 kg

DRUGS (11)
  1. CARBOPLATIN. [Concomitant]
     Active Substance: CARBOPLATIN
     Dosage: SOLUTION: 250ML NS
     Dates: start: 20111130
  2. DOCETAXEL ACCORD [Suspect]
     Active Substance: DOCETAXEL
     Indication: BREAST CANCER
     Dosage: NO OF CYCLE: 06 ( EVERY THREE WEEKS)?SOLUTION: 250 NS
     Route: 042
     Dates: start: 20111130, end: 20120313
  3. HYDROCODONE [Concomitant]
     Active Substance: HYDROCODONE
     Dates: start: 20101001
  4. ALOXI [Concomitant]
     Active Substance: PALONOSETRON HYDROCHLORIDE
     Route: 042
     Dates: start: 20111130
  5. NEULASTA [Concomitant]
     Active Substance: PEGFILGRASTIM
     Dosage: STRENGTH: 6 MG
     Dates: start: 20111201
  6. BENADRYL [Concomitant]
     Active Substance: DIPHENHYDRAMINE HYDROCHLORIDE
     Dosage: SOLUTION: 100 ML NS
     Route: 048
     Dates: start: 20111129
  7. ZOFRAN [Concomitant]
     Active Substance: ONDANSETRON HYDROCHLORIDE
     Dosage: SOLUTION: 500 ML NS
     Route: 042
     Dates: start: 20120209
  8. BENICAR HCT [Concomitant]
     Active Substance: HYDROCHLOROTHIAZIDE\OLMESARTAN MEDOXOMIL
     Dates: start: 20090216, end: 20151111
  9. HERCEPTIN [Concomitant]
     Active Substance: TRASTUZUMAB
     Dosage: SOLUTION: 250 ML NS
     Dates: start: 20111129
  10. PEPCID [Concomitant]
     Active Substance: FAMOTIDINE
     Route: 042
     Dates: start: 20111129
  11. TYLENOL [Concomitant]
     Active Substance: ACETAMINOPHEN
     Route: 048
     Dates: start: 20111129

REACTIONS (1)
  - Alopecia [Not Recovered/Not Resolved]

NARRATIVE: CASE EVENT DATE: 20170415
